FAERS Safety Report 9500465 (Version 1)
Quarter: 2013Q3

REPORT INFORMATION
  Report Type: Spontaneous
  Country: US (occurrence: None)
  Receive Date: 20130904
  Receipt Date: 20130904
  Transmission Date: 20140515
  Serious: No
  Sender: FDA-Public Use
  Company Number: None

PATIENT
  Age: 60 Year
  Sex: Female
  Weight: 54.43 kg

DRUGS (1)
  1. PRAMIPEXOLE DI HCL [Suspect]
     Indication: RESTLESS LEGS SYNDROME
     Route: 048
     Dates: start: 20111213, end: 20130320

REACTIONS (5)
  - Abnormal dreams [None]
  - Nightmare [None]
  - Fear [None]
  - Condition aggravated [None]
  - Product substitution issue [None]
